FAERS Safety Report 8152325-4 (Version None)
Quarter: 2012Q1

REPORT INFORMATION
  Report Type: 
  Country: None (occurrence: None)
  Receive Date: 20120221
  Receipt Date: 20120213
  Transmission Date: 20120608
  Serious: Yes (Hospitalization)
  Sender: FDA-Public Use
  Company Number: US-BAYER-2011-087350

PATIENT
  Age: 28 Year
  Sex: Female

DRUGS (5)
  1. YAZ [Suspect]
     Indication: CONTRACEPTION
     Dosage: UNK
     Dates: start: 20090401, end: 20100101
  2. YAZ [Suspect]
     Indication: PREMENSTRUAL SYNDROME
  3. PROTONIX [Concomitant]
     Indication: ABDOMINAL PAIN
     Dosage: 4 MG, ONCE
  4. IBUPROFEN [Concomitant]
     Dosage: MONTLY
     Route: 048
  5. TRI-SPRINTEC [Concomitant]
     Indication: CONTRACEPTION
     Dosage: UNK
     Dates: start: 20100101

REACTIONS (3)
  - CHOLELITHIASIS [None]
  - CHOLECYSTITIS [None]
  - PAIN [None]
